FAERS Safety Report 7764495-8 (Version None)
Quarter: 2011Q3

REPORT INFORMATION
  Report Type: 
  Country: None (occurrence: None)
  Receive Date: 20110921
  Receipt Date: 20110914
  Transmission Date: 20111222
  Serious: Yes (Hospitalization)
  Sender: FDA-Public Use
  Company Number: FR-SANOFI-AVENTIS-2011SA059776

PATIENT
  Age: 80 Year
  Sex: Male

DRUGS (11)
  1. IKOREL [Concomitant]
     Route: 048
  2. ATARAX [Concomitant]
     Route: 048
  3. NITROGLYCERIN [Concomitant]
     Route: 003
  4. RAMIPRIL [Concomitant]
     Route: 048
  5. OMEPRAZOLE [Concomitant]
     Route: 048
  6. MULTAQ [Suspect]
     Route: 048
     Dates: start: 20101101, end: 20110729
  7. INDAPAMIDE [Concomitant]
     Route: 048
  8. CORDARONE [Suspect]
     Route: 048
     Dates: start: 20100601, end: 20100901
  9. PLAVIX [Concomitant]
     Route: 048
  10. LEVOTHYROXINE SODIUM [Concomitant]
     Route: 048
  11. ALFUZOSIN HCL [Concomitant]
     Indication: BENIGN PROSTATIC HYPERPLASIA
     Route: 048

REACTIONS (2)
  - CHOLESTASIS [None]
  - UNDERDOSE [None]
